FAERS Safety Report 7222338-5 (Version None)
Quarter: 2011Q1

REPORT INFORMATION
  Report Type: 
  Country: None (occurrence: None)
  Receive Date: 20110112
  Receipt Date: 20110104
  Transmission Date: 20110831
  Serious: Yes (Other)
  Sender: FDA-Public Use
  Company Number: FR-ASTRAZENECA-2011SE01187

PATIENT
  Age: 42 Year
  Sex: Female

DRUGS (1)
  1. DIPRIVAN [Suspect]
     Route: 030
     Dates: start: 20110103, end: 20110103

REACTIONS (2)
  - SUICIDE ATTEMPT [None]
  - INCORRECT ROUTE OF DRUG ADMINISTRATION [None]
